FAERS Safety Report 11746670 (Version 1)
Quarter: 2015Q4

REPORT INFORMATION
  Report Type: Spontaneous
  Country: US (occurrence: US)
  Receive Date: 20151117
  Receipt Date: 20151117
  Transmission Date: 20160304
  Serious: No
  Sender: FDA-Public Use
  Company Number: US-PERRIGO-15US008621

PATIENT
  Age: 51 Year
  Sex: Male
  Weight: 77.98 kg

DRUGS (2)
  1. COMPLERA [Concomitant]
     Active Substance: EMTRICITABINE\RILPIVIRINE HYDROCHLORIDE\TENOFOVIR DISOPROXIL FUMARATE
     Indication: HIV INFECTION
     Dosage: UNK
     Route: 065
  2. ERYTHROMYCIN OPHTHALMIC USP 0.5% 5W7 [Suspect]
     Active Substance: ERYTHROMYCIN
     Indication: RETINAL OPERATION
     Dosage: SMALL AMOUNT, BID
     Route: 047
     Dates: start: 201503, end: 201503

REACTIONS (5)
  - Lacrimation increased [Recovered/Resolved]
  - Off label use [Recovered/Resolved]
  - Eye irritation [Recovered/Resolved]
  - Corneal abrasion [Recovered/Resolved]
  - Ocular hyperaemia [Recovered/Resolved]

NARRATIVE: CASE EVENT DATE: 201503
